FAERS Safety Report 7522199-0 (Version None)
Quarter: 2011Q2

REPORT INFORMATION
  Report Type: 
  Country: None (occurrence: None)
  Receive Date: 20110531
  Receipt Date: 20110524
  Transmission Date: 20111010
  Serious: Yes (Death, Other)
  Sender: FDA-Public Use
  Company Number: PHHY2011JP45302

PATIENT
  Sex: Female

DRUGS (3)
  1. PERSANTIN [Concomitant]
     Dosage: 75 MG, UNK
     Route: 048
  2. VALSARTAN [Suspect]
     Indication: HYPERTENSION
     Dosage: 80 MG, QD
     Route: 048
     Dates: start: 20080718
  3. CONIEL [Concomitant]
     Dosage: 4 MG, UNK
     Route: 048

REACTIONS (3)
  - URINARY TRACT INFECTION [None]
  - BLOOD PRESSURE DIASTOLIC DECREASED [None]
  - SEPSIS [None]
